FAERS Safety Report 12012265 (Version 1)
Quarter: 2016Q1

REPORT INFORMATION
  Report Type: Report from Study
  Country: ES (occurrence: ES)
  Receive Date: 20160205
  Receipt Date: 20160205
  Transmission Date: 20160526
  Serious: Yes (Hospitalization)
  Sender: FDA-Public Use
  Company Number: ES-GILEAD-2016-0192549

PATIENT
  Age: 74 Year
  Sex: Male

DRUGS (3)
  1. IDELALISIB [Suspect]
     Active Substance: IDELALISIB
     Indication: NON-HODGKIN^S LYMPHOMA UNSPECIFIED HISTOLOGY INDOLENT
     Dosage: 100 MG, BID
     Route: 048
     Dates: start: 20151216, end: 20160112
  2. BENDAMUSTINE [Suspect]
     Active Substance: BENDAMUSTINE
     Indication: NON-HODGKIN^S LYMPHOMA UNSPECIFIED HISTOLOGY INDOLENT
     Dosage: 172 MG, CYCLICAL
     Route: 042
     Dates: start: 20140414, end: 20140923
  3. RITUXIMAB [Suspect]
     Active Substance: RITUXIMAB
     Indication: NON-HODGKIN^S LYMPHOMA UNSPECIFIED HISTOLOGY INDOLENT
     Dosage: 718 MG, CYCLICAL
     Route: 042
     Dates: start: 20140414, end: 20140922

REACTIONS (1)
  - Varicella [Recovered/Resolved]

NARRATIVE: CASE EVENT DATE: 20160112
